FAERS Safety Report 6594236-1 (Version None)
Quarter: 2010Q1

REPORT INFORMATION
  Report Type: 
  Country: None (occurrence: None)
  Receive Date: 20100222
  Receipt Date: 20100212
  Transmission Date: 20100710
  Serious: Yes (Hospitalization, Disabling, Other)
  Sender: FDA-Public Use
  Company Number: US-MERCK-0807USA01650

PATIENT
  Age: 53 Year
  Sex: Female

DRUGS (5)
  1. FOSAMAX [Suspect]
     Indication: OSTEOPOROSIS
     Route: 048
     Dates: start: 20010101, end: 20020301
  2. FOSAMAX [Suspect]
     Route: 048
     Dates: start: 20090301
  3. BONIVA [Suspect]
     Indication: OSTEOPOROSIS
     Route: 065
     Dates: start: 20060901, end: 20070601
  4. BONIVA [Suspect]
     Route: 065
     Dates: start: 20050101
  5. HORMONES (UNSPECIFIED) [Concomitant]
     Route: 065
     Dates: start: 19980101

REACTIONS (41)
  - ANXIETY [None]
  - ASTHENIA [None]
  - BONE DENSITY DECREASED [None]
  - CHEST PAIN [None]
  - CHRONIC SINUSITIS [None]
  - DENTAL CARIES [None]
  - DEPRESSION [None]
  - DRUG HYPERSENSITIVITY [None]
  - DRUG INEFFECTIVE [None]
  - DRY MOUTH [None]
  - FACE INJURY [None]
  - FAMILY STRESS [None]
  - FATIGUE [None]
  - GASTROOESOPHAGEAL REFLUX DISEASE [None]
  - GENITAL HERPES [None]
  - HEADACHE [None]
  - HERPES VIRUS INFECTION [None]
  - HERPES ZOSTER [None]
  - IMPAIRED HEALING [None]
  - INSOMNIA [None]
  - JAW DISORDER [None]
  - LOW TURNOVER OSTEOPATHY [None]
  - MIGRAINE [None]
  - MUSCLE SPASMS [None]
  - NERVE INJURY [None]
  - ORAL HERPES [None]
  - OSTEONECROSIS [None]
  - OSTEOPENIA [None]
  - PAIN [None]
  - PAIN IN JAW [None]
  - PANIC ATTACK [None]
  - PULPITIS DENTAL [None]
  - SINUS DISORDER [None]
  - SLEEP DISORDER [None]
  - SMEAR CERVIX ABNORMAL [None]
  - SOMNOLENCE [None]
  - TEMPOROMANDIBULAR JOINT SYNDROME [None]
  - TENSION HEADACHE [None]
  - TOOTH ABSCESS [None]
  - TOOTH FRACTURE [None]
  - TRIGEMINAL NEURALGIA [None]
